FAERS Safety Report 6059884-6 (Version None)
Quarter: 2009Q1

REPORT INFORMATION
  Report Type: 
  Country: None (occurrence: None)
  Receive Date: 20090130
  Receipt Date: 20080616
  Transmission Date: 20090719
  Serious: No
  Sender: FDA-Public Use
  Company Number: US-ABBOTT-08P-163-0457480-00

PATIENT
  Sex: Female
  Weight: 14.5 kg

DRUGS (1)
  1. LUPRON DEPOT [Suspect]
     Indication: PRECOCIOUS PUBERTY
     Route: 030
     Dates: start: 20080220

REACTIONS (2)
  - AGGRESSION [None]
  - PSYCHOMOTOR HYPERACTIVITY [None]
